FAERS Safety Report 5148489-7 (Version None)
Quarter: 2006Q4

REPORT INFORMATION
  Report Type: 
  Country: None (occurrence: None)
  Receive Date: 20061106
  Receipt Date: 20061031
  Transmission Date: 20070319
  Serious: Yes (Other)
  Sender: FDA-Public Use
  Company Number: HQWYE990331OCT06

PATIENT
  Age: 70 Year

DRUGS (4)
  1. CORDARONE [Suspect]
     Indication: ATRIAL FIBRILLATION
     Dosage: SEE IMAGE
     Route: 048
     Dates: start: 20060819, end: 20060825
  2. CORDARONE [Suspect]
     Indication: ATRIAL FIBRILLATION
     Dosage: SEE IMAGE
     Route: 048
     Dates: start: 20060826, end: 20060910
  3. CORDARONE [Suspect]
     Indication: ATRIAL FIBRILLATION
     Dosage: 600 MG 1X PER 1 DAY INTRAVENOUS
     Route: 042
     Dates: start: 20060818, end: 20060819
  4. CORDARONE [Suspect]
     Indication: ATRIAL FIBRILLATION
     Dosage: 600 MG 1X PER 1 DAY INTRAVENOUS
     Route: 042
     Dates: start: 20061004, end: 20061006

REACTIONS (2)
  - JAUNDICE [None]
  - LIVER FUNCTION TEST ABNORMAL [None]
